FAERS Safety Report 21057398 (Version 7)
Quarter: 2022Q4

REPORT INFORMATION
  Report Type: Spontaneous
  Country: US (occurrence: None)
  Receive Date: 20220708
  Receipt Date: 20221020
  Transmission Date: 20230113
  Serious: Yes (Hospitalization)
  Sender: FDA-Public Use
  Company Number: US-ROCHE-3134064

PATIENT
  Sex: Female
  Weight: 68.554 kg

DRUGS (12)
  1. ACTEMRA [Suspect]
     Active Substance: TOCILIZUMAB
     Indication: Giant cell arteritis
     Dosage: 162MG 0.9ML
     Route: 058
     Dates: start: 20220330
  2. ACTEMRA [Suspect]
     Active Substance: TOCILIZUMAB
  3. ACTEMRA [Suspect]
     Active Substance: TOCILIZUMAB
     Indication: Polymyalgia rheumatica
     Route: 058
     Dates: start: 20220510
  4. ACTEMRA [Suspect]
     Active Substance: TOCILIZUMAB
  5. LEVEMIR [Concomitant]
     Active Substance: INSULIN DETEMIR
     Indication: Diabetes mellitus
     Dosage: 22 UNITS AT NIGHT; STARTED BEFORE ACTEMRA
     Route: 058
  6. NOVOLOG [Concomitant]
     Active Substance: INSULIN ASPART
     Indication: Diabetes mellitus
     Dosage: AMOUNT IS ON SLIDING SCALE BEFORE MEALS DEPENDING ON HER BLOOD?SUGAR NUMBERS; STARTED BEFORE ACTEMRA
     Route: 058
  7. LISINOPRIL [Concomitant]
     Active Substance: LISINOPRIL
     Indication: Hypertension
     Dosage: STARTED BEFORE ACTEMRA
     Route: 048
  8. ATORVASTATIN [Concomitant]
     Active Substance: ATORVASTATIN
     Indication: Blood cholesterol increased
     Dosage: STARTED BEFORE ACTEMRA
     Route: 048
  9. VITAMIN D [Concomitant]
     Active Substance: VITAMIN D NOS
     Indication: Vitamin D decreased
     Dosage: STARTED BEFORE ACTEMRA
     Route: 048
  10. CALCIUM [Concomitant]
     Active Substance: CALCIUM
     Dosage: STARTED BEFORE ACTEMRA
     Route: 048
  11. ZYRTEC [Concomitant]
     Active Substance: CETIRIZINE HYDROCHLORIDE
     Indication: Seasonal allergy
     Dosage: STARTED BEFORE ACTEMRA
     Route: 048
  12. VITAMINS [Concomitant]
     Active Substance: VITAMINS
     Dosage: STARTED BEFORE ACTEMRA
     Route: 048

REACTIONS (9)
  - Hip fracture [Recovered/Resolved]
  - Fall [Unknown]
  - Upper limb fracture [Recovering/Resolving]
  - Blood glucose decreased [Recovered/Resolved]
  - Loss of consciousness [Recovered/Resolved]
  - Musculoskeletal stiffness [Not Recovered/Not Resolved]
  - Off label use [Unknown]
  - Product complaint [Unknown]
  - Drug delivery system malfunction [Unknown]

NARRATIVE: CASE EVENT DATE: 20220614
